FAERS Safety Report 22008283 (Version 1)
Quarter: 2023Q1

REPORT INFORMATION
  Report Type: Spontaneous
  Country: US (occurrence: US)
  Receive Date: 20230219
  Receipt Date: 20230219
  Transmission Date: 20230418
  Serious: No
  Sender: FDA-Public Use
  Company Number: US-JNJFOC-20230220352

PATIENT
  Age: 75 Year
  Sex: Female
  Weight: 78.02 kg

DRUGS (3)
  1. ZYRTEC [Suspect]
     Active Substance: CETIRIZINE HYDROCHLORIDE
     Indication: Rhinorrhoea
     Dosage: TAKING IT FOR THE LAST 3 4 DAYS, ONCE A DAY
     Route: 065
     Dates: start: 202301
  2. IBRANCE [Concomitant]
     Active Substance: PALBOCICLIB
     Indication: Breast cancer
     Dosage: 125MG EVERY DAY FOR 21 DAYS AND THEN OFF A WEEK, BY MOUTH
     Route: 048
     Dates: start: 202211
  3. LETROZOLE [Concomitant]
     Active Substance: LETROZOLE
     Indication: Breast cancer
     Dosage: 25MG DAILY BY MOUTH
     Route: 048
     Dates: start: 202211

REACTIONS (2)
  - Off label use [Unknown]
  - Therapeutic response unexpected [Unknown]

NARRATIVE: CASE EVENT DATE: 20230101
